FAERS Safety Report 10975105 (Version 1)
Quarter: 2015Q2

REPORT INFORMATION
  Report Type: Spontaneous
  Country: TW (occurrence: TW)
  Receive Date: 20150401
  Receipt Date: 20150401
  Transmission Date: 20150821
  Serious: Yes (Hospitalization, Other)
  Sender: FDA-Public Use
  Company Number: TW-AMGEN-TWNSP2015029098

PATIENT
  Age: 57 Year
  Sex: Female

DRUGS (7)
  1. VINORELBINE [Concomitant]
     Active Substance: VINORELBINE\VINORELBINE TARTRATE
     Dosage: 20 MG/M ON DAYS 1 AND 8 AND THEN EVERY 3 WEEKS
     Route: 042
  2. CAPECITABINE. [Concomitant]
     Active Substance: CAPECITABINE
     Dosage: 1000-2000 MG/DAY ON DAY 1-14
     Route: 048
  3. MORPHINE [Concomitant]
     Active Substance: MORPHINE
  4. HYDROCORTISONE. [Concomitant]
     Active Substance: HYDROCORTISONE
  5. FENTANYL. [Concomitant]
     Active Substance: FENTANYL
  6. LETROZOLE. [Concomitant]
     Active Substance: LETROZOLE
     Dosage: 2.5 MG, QD
  7. XGEVA [Suspect]
     Active Substance: DENOSUMAB
     Indication: METASTASES TO BONE
     Dosage: 120 MG, Q4WK
     Route: 058

REACTIONS (8)
  - Insomnia [Recovered/Resolved]
  - Hypocalcaemia [Recovered/Resolved]
  - Anxiety [Recovered/Resolved]
  - Mood swings [Recovered/Resolved]
  - Blood parathyroid hormone decreased [Unknown]
  - Panic attack [Recovered/Resolved]
  - Anxiety disorder due to a general medical condition [Recovered/Resolved]
  - Restlessness [Recovered/Resolved]
